FAERS Safety Report 10360707 (Version 1)
Quarter: 2014Q3

REPORT INFORMATION
  Report Type: Spontaneous
  Country: CH (occurrence: CH)
  Receive Date: 20140804
  Receipt Date: 20140804
  Transmission Date: 20150326
  Serious: Yes (Other)
  Sender: FDA-Public Use
  Company Number: CH-ABBVIE-14K-151-1266222-00

PATIENT
  Sex: Female

DRUGS (4)
  1. SPIRICORT [Concomitant]
     Active Substance: PREDNISOLONE
     Indication: PRODUCT USED FOR UNKNOWN INDICATION
  2. HUMIRA [Suspect]
     Active Substance: ADALIMUMAB
     Indication: CROHN^S DISEASE
     Dates: start: 201207
  3. PIMECROLIMUS [Concomitant]
     Active Substance: PIMECROLIMUS
     Indication: PRODUCT USED FOR UNKNOWN INDICATION
  4. METRONIDAZOLUM [Concomitant]
     Indication: PRODUCT USED FOR UNKNOWN INDICATION

REACTIONS (4)
  - Skin burning sensation [Not Recovered/Not Resolved]
  - Systemic lupus erythematosus [Unknown]
  - Facial pain [Not Recovered/Not Resolved]
  - Erythema [Not Recovered/Not Resolved]
